FAERS Safety Report 7210299-4 (Version None)
Quarter: 2011Q1

REPORT INFORMATION
  Report Type: 
  Country: None (occurrence: None)
  Receive Date: 20110103
  Receipt Date: 20110103
  Transmission Date: 20110831
  Serious: Yes (Life-Threatening, Hospitalization)
  Sender: FDA-Public Use
  Company Number: None

PATIENT
  Age: 80 Year
  Sex: Male
  Weight: 87.3 kg

DRUGS (1)
  1. LISINOPRIL AND HYDROCHLOROTHIAZIDE [Suspect]
     Indication: HYPERTENSION
     Dosage: 25/20 MG EVERYDAY PO
     Route: 048
     Dates: start: 20070419, end: 20090706

REACTIONS (3)
  - ANGIOEDEMA [None]
  - DYSPNOEA [None]
  - DYSPHAGIA [None]
